FAERS Safety Report 5623862-9 (Version None)
Quarter: 2008Q1

REPORT INFORMATION
  Report Type: 
  Country: None (occurrence: None)
  Receive Date: 20080207
  Receipt Date: 20080124
  Transmission Date: 20080703
  Serious: Yes (Other)
  Sender: FDA-Public Use
  Company Number: 2008S1001274

PATIENT
  Age: 22 Year
  Sex: Female

DRUGS (2)
  1. CITALOPRAM HYDROBROMIDE [Suspect]
     Indication: DEPRESSION
     Dosage: 20 MG; ORAL
     Route: 048
     Dates: start: 20071206, end: 20071218
  2. ESCITALOPRAM OXALATE [Suspect]
     Indication: DEPRESSION
     Dosage: 10 MG; ORAL
     Route: 048
     Dates: start: 20071215, end: 20071223

REACTIONS (3)
  - AGITATION [None]
  - FEAR [None]
  - HALLUCINATION, VISUAL [None]
